FAERS Safety Report 25341470 (Version 1)
Quarter: 2025Q2

REPORT INFORMATION
  Report Type: Spontaneous
  Country: US (occurrence: US)
  Receive Date: 20250521
  Receipt Date: 20250521
  Transmission Date: 20250716
  Serious: Yes (Hospitalization)
  Sender: Unknown Manufacturer
  Company Number: US-MELINTA THERAPEUTICS, LLC-US-MLNT-25-00128

PATIENT

DRUGS (8)
  1. ORITAVANCIN [Suspect]
     Active Substance: ORITAVANCIN
     Indication: Osteomyelitis
     Route: 041
     Dates: start: 20230602, end: 20230602
  2. SULFAMETHOXAZOLE\TRIMETHOPRIM [Suspect]
     Active Substance: SULFAMETHOXAZOLE\TRIMETHOPRIM
     Indication: Osteomyelitis
     Dates: start: 20230520, end: 20230602
  3. METRONIDAZOLE [Suspect]
     Active Substance: METRONIDAZOLE
     Indication: Osteomyelitis
     Route: 042
     Dates: start: 20230602, end: 20230602
  4. METRONIDAZOLE [Suspect]
     Active Substance: METRONIDAZOLE
     Route: 048
  5. FLUCONAZOLE [Suspect]
     Active Substance: FLUCONAZOLE
     Indication: Osteomyelitis
     Route: 048
  6. DALBAVANCIN [Suspect]
     Active Substance: DALBAVANCIN
     Indication: Osteomyelitis
     Route: 042
     Dates: start: 20230609, end: 20230609
  7. DALBAVANCIN [Suspect]
     Active Substance: DALBAVANCIN
     Route: 042
     Dates: start: 20230616, end: 20230616
  8. CEPHALEXIN [Concomitant]
     Active Substance: CEPHALEXIN
     Indication: Osteomyelitis
     Dates: start: 20230511, end: 20230520

REACTIONS (2)
  - Drug reaction with eosinophilia and systemic symptoms [Recovered/Resolved]
  - Off label use [Recovered/Resolved]

NARRATIVE: CASE EVENT DATE: 20230618
